FAERS Safety Report 7133969-5 (Version None)
Quarter: 2010Q4

REPORT INFORMATION
  Report Type: 
  Country: None (occurrence: None)
  Receive Date: 20101203
  Receipt Date: 20101124
  Transmission Date: 20110411
  Serious: Yes (Hospitalization, Disabling, Other)
  Sender: FDA-Public Use
  Company Number: FR-PFIZER INC-2010157460

PATIENT
  Age: 41 Year
  Sex: Male

DRUGS (1)
  1. TAHOR [Suspect]
     Dosage: UNK

REACTIONS (2)
  - PANCREATIC FISTULA [None]
  - PANCREATITIS NECROTISING [None]
